FAERS Safety Report 4753220-0 (Version None)
Quarter: 2005Q3

REPORT INFORMATION
  Report Type: 
  Country: None (occurrence: None)
  Receive Date: 20050824
  Receipt Date: 20050809
  Transmission Date: 20060218
  Serious: Yes (Other)
  Sender: FDA-Public Use
  Company Number: USA050187600

PATIENT
  Age: 69 Year
  Sex: Female

DRUGS (2)
  1. EVISTA [Suspect]
     Dates: start: 20030101, end: 20050502
  2. PREMPRO [Concomitant]

REACTIONS (3)
  - ASPIRATION BONE MARROW ABNORMAL [None]
  - FOOT OPERATION [None]
  - THROMBOCYTOPENIA [None]
